FAERS Safety Report 4627902-5 (Version None)
Quarter: 2005Q2

REPORT INFORMATION
  Report Type: 
  Country: None (occurrence: None)
  Receive Date: 20050406
  Receipt Date: 20050330
  Transmission Date: 20051028
  Serious: Yes (Life-Threatening)
  Sender: FDA-Public Use
  Company Number: FR-BRISTOL-MYERS SQUIBB COMPANY-12916722

PATIENT
  Age: 50 Year
  Sex: Male

DRUGS (5)
  1. SUSTIVA [Suspect]
     Route: 048
     Dates: start: 20010405
  2. MEDIATOR [Suspect]
  3. LEXOMIL [Suspect]
  4. STILNOX [Suspect]
  5. COMBIVIR [Suspect]
     Dates: start: 20010405

REACTIONS (1)
  - MYOCARDIAL INFARCTION [None]
